FAERS Safety Report 5757369-5 (Version None)
Quarter: 2008Q2

REPORT INFORMATION
  Report Type: 
  Country: None (occurrence: None)
  Receive Date: 20080603
  Receipt Date: 20080522
  Transmission Date: 20081010
  Serious: Yes (Life-Threatening, Disabling)
  Sender: FDA-Public Use
  Company Number: JP-SANOFI-SYNTHELABO-A01200804172

PATIENT
  Sex: Male
  Weight: 54 kg

DRUGS (15)
  1. NOVOLIN N [Concomitant]
     Indication: DIABETES MELLITUS
     Route: 058
     Dates: start: 20080326
  2. NOVOLIN R [Concomitant]
     Indication: DIABETES MELLITUS
     Route: 058
     Dates: start: 20080326
  3. CLARITIN [Concomitant]
     Indication: RHINITIS ALLERGIC
     Route: 048
     Dates: start: 20080326
  4. RENIVEZE [Concomitant]
     Indication: HYPERTENSION
     Route: 048
     Dates: start: 20080326
  5. SELBEX [Concomitant]
     Indication: GASTRITIS
     Route: 048
     Dates: start: 20080326
  6. PYDOXAL [Concomitant]
     Indication: NEUROPATHY PERIPHERAL
     Route: 048
     Dates: start: 20080326
  7. ALFAROL [Concomitant]
     Indication: OSTEOPOROSIS
     Route: 048
     Dates: start: 20080326
  8. NIZATIDINE [Concomitant]
     Indication: GASTRITIS
     Route: 048
     Dates: start: 20080326
  9. DECADRON [Concomitant]
     Indication: PREMEDICATION
     Route: 041
     Dates: start: 20071017, end: 20080326
  10. LEUCOVORIN CALCIUM [Suspect]
     Route: 041
     Dates: start: 20080326, end: 20080326
  11. KYTRIL [Concomitant]
     Indication: PREMEDICATION
     Route: 041
     Dates: start: 20071017, end: 20080326
  12. ELPLAT [Suspect]
     Indication: RECTAL CANCER
     Route: 041
     Dates: start: 20080326, end: 20080326
  13. FLUOROURACIL [Concomitant]
     Route: 040
     Dates: start: 20080312, end: 20080312
  14. FLUOROURACIL [Concomitant]
     Route: 041
     Dates: start: 20080312, end: 20080313
  15. BEVACIZUMAB [Suspect]
     Route: 041
     Dates: start: 20080326, end: 20080326

REACTIONS (3)
  - ANAPHYLACTIC SHOCK [None]
  - ASTHMA [None]
  - HYPOXIC ENCEPHALOPATHY [None]
